FAERS Safety Report 4959603-8 (Version None)
Quarter: 2006Q1

REPORT INFORMATION
  Report Type: 
  Country: None (occurrence: None)
  Receive Date: 20060324
  Receipt Date: 20060307
  Transmission Date: 20060701
  Serious: Yes (Hospitalization, Other)
  Sender: FDA-Public Use
  Company Number: US200603003016

PATIENT
  Age: 52 Year
  Sex: Male
  Weight: 75.7 kg

DRUGS (15)
  1. ZYPREXA(OLANZAPINE) TABLET [Suspect]
     Dosage: SEE IMAGE
  2. ASCORBIC ACID [Concomitant]
  3. COREG [Concomitant]
  4. DIGOXIN (DIGOXIN) AMPOULE [Concomitant]
  5. ASA (ASPIRIN (ACETYLSALICYLIC ACID)) TABLET [Concomitant]
  6. REMERON [Concomitant]
  7. VASOTEC [Concomitant]
  8. PRINIVIL [Concomitant]
  9. FENOFIBRATE [Concomitant]
  10. AXID (NIZATIDINE) AMPOULE [Concomitant]
  11. MUCOMYST [Concomitant]
  12. PLAVIX [Concomitant]
  13. HYDROCHLOROTHIAZIDE [Concomitant]
  14. LAMICTAL [Concomitant]
  15. ZANTAC [Concomitant]

REACTIONS (11)
  - ATELECTASIS [None]
  - BLOOD PRESSURE INCREASED [None]
  - DIABETES MELLITUS [None]
  - HIGH DENSITY LIPOPROTEIN DECREASED [None]
  - HYPERTRIGLYCERIDAEMIA [None]
  - LIPIDS INCREASED [None]
  - PLEURAL EFFUSION [None]
  - REFUSAL OF TREATMENT BY PATIENT [None]
  - RENAL ARTERY STENOSIS [None]
  - WEIGHT DECREASED [None]
  - WEIGHT INCREASED [None]
